FAERS Safety Report 6545117-0 (Version None)
Quarter: 2010Q1

REPORT INFORMATION
  Report Type: 
  Country: None (occurrence: None)
  Receive Date: 20100121
  Receipt Date: 20100118
  Transmission Date: 20100710
  Serious: Yes (Other)
  Sender: FDA-Public Use
  Company Number: GXKR2010DE00868

PATIENT
  Age: 82 Year

DRUGS (4)
  1. CIPROFLOXACIN (NGX) [Suspect]
     Dosage: 500 MG, ONCE/SINGLE
     Route: 048
     Dates: start: 20091230
  2. METOPROLOL SUCCINATE [Concomitant]
     Dosage: 47.5 MG, UNK
     Route: 048
  3. RAMIPRIL [Concomitant]
     Dosage: 5 MG, UNK
     Route: 048
  4. MYOSON [Concomitant]
     Route: 048

REACTIONS (3)
  - CARDIOMYOPATHY [None]
  - MUSCLE SPASMS [None]
  - SYNCOPE [None]
